FAERS Safety Report 20989243 (Version 4)
Quarter: 2022Q3

REPORT INFORMATION
  Report Type: Report from Study
  Country: US (occurrence: US)
  Receive Date: 20220621
  Receipt Date: 20220908
  Transmission Date: 20221027
  Serious: Yes (Life-Threatening, Hospitalization, Other)
  Sender: FDA-Public Use
  Company Number: US-GILEAD-2022-0586612

PATIENT
  Age: 62 Year
  Sex: Male
  Weight: 88.5 kg

DRUGS (33)
  1. REMDESIVIR [Suspect]
     Active Substance: REMDESIVIR
     Indication: COVID-19
     Dosage: 200 MG, QD
     Route: 042
     Dates: start: 20211126, end: 20211126
  2. REMDESIVIR [Suspect]
     Active Substance: REMDESIVIR
     Dosage: UNK UNK, QD
     Route: 042
     Dates: start: 20211127, end: 20211129
  3. REMDESIVIR [Suspect]
     Active Substance: REMDESIVIR
     Dosage: 100 MG, QD
     Route: 042
     Dates: start: 20211130, end: 20211130
  4. CYCLOSPORINE [Suspect]
     Active Substance: CYCLOSPORINE
     Indication: COVID-19
     Dosage: 5 MG/KG, QD
     Route: 048
     Dates: start: 20211130, end: 20220104
  5. ENOXAPARIN [Concomitant]
     Active Substance: ENOXAPARIN
     Indication: Deep vein thrombosis
     Dosage: 40 MG
     Dates: start: 20220127
  6. NOREPINEPHRINE [Concomitant]
     Active Substance: NOREPINEPHRINE
     Dosage: UNK
     Dates: start: 20220201, end: 20220202
  7. BUDESONIDE [Concomitant]
     Active Substance: BUDESONIDE
     Dosage: 0.5 MG, BID
     Dates: start: 20211130
  8. DEXAMETHASONE [Concomitant]
     Active Substance: DEXAMETHASONE
     Dosage: 6 MG
     Dates: start: 20211206
  9. ALBUTEROL\IPRATROPIUM [Concomitant]
     Active Substance: ALBUTEROL\IPRATROPIUM
     Dosage: UNK
     Dates: start: 20220117
  10. METHYLPREDNISOLONE [Concomitant]
     Active Substance: METHYLPREDNISOLONE
     Dosage: 40 MG, Q8H
     Route: 042
     Dates: start: 20220114
  11. ACETYLCYSTEINE [Concomitant]
     Active Substance: ACETYLCYSTEINE
     Dosage: UNK
     Dates: start: 20220117, end: 20220131
  12. ARFORMOTEROL [Concomitant]
     Active Substance: ARFORMOTEROL
     Dosage: UNK
     Dates: start: 20220114, end: 20220131
  13. ASCORBIC ACID [Concomitant]
     Active Substance: ASCORBIC ACID
     Dosage: UNK
     Dates: start: 20211127, end: 20220128
  14. CHOLECALCIFEROL [Concomitant]
     Active Substance: CHOLECALCIFEROL
     Dosage: UNK
     Dates: start: 20211127, end: 20220128
  15. HYDROCORTISONE [Concomitant]
     Active Substance: HYDROCORTISONE
     Dosage: UNK
     Dates: start: 20220126, end: 20220126
  16. POLYMYXIN B [Concomitant]
     Active Substance: POLYMYXIN B
     Dosage: UNK
     Dates: start: 20220126, end: 20220126
  17. SUCCINYLCHOLINE [Concomitant]
     Active Substance: SUCCINYLCHOLINE
     Dosage: UNK
     Dates: start: 20220126, end: 20220126
  18. ROCURONIUM [Concomitant]
     Active Substance: ROCURONIUM BROMIDE
     Dosage: UNK
     Dates: start: 20220126, end: 20220126
  19. ACETAMINOPHEN [Concomitant]
     Active Substance: ACETAMINOPHEN
     Dosage: 650 MG
  20. AZITHROMYCIN [Concomitant]
     Active Substance: AZITHROMYCIN
     Dosage: 500 MG
  21. BENZONATATE [Concomitant]
     Active Substance: BENZONATATE
     Dosage: 200 MG
  22. CEFTRIAXONE [Concomitant]
     Active Substance: CEFTRIAXONE
     Dosage: 2 G
  23. DEXTROMETHORPHAN\GUAIFENESIN [Concomitant]
     Active Substance: DEXTROMETHORPHAN\GUAIFENESIN
     Dosage: 5 ML
  24. TOCILIZUMAB [Concomitant]
     Active Substance: TOCILIZUMAB
     Dosage: 720 MG
  25. ZINC SULFATE [Concomitant]
     Active Substance: ZINC SULFATE
     Dosage: 220 MG
  26. HYDRALAZINE [Concomitant]
     Active Substance: HYDRALAZINE HYDROCHLORIDE
  27. OXYGEN [Concomitant]
     Active Substance: OXYGEN
  28. METRONIDAZOLE [Concomitant]
     Active Substance: METRONIDAZOLE
     Dosage: 500 MG, Q8H
     Route: 042
     Dates: start: 20220123
  29. VANCOMYCIN [Concomitant]
     Active Substance: VANCOMYCIN
     Dosage: 1500 MG
  30. VANCOMYCIN [Concomitant]
     Active Substance: VANCOMYCIN
     Dosage: 1250 MG
     Dates: start: 20020122
  31. VANCOMYCIN [Concomitant]
     Active Substance: VANCOMYCIN
     Dosage: 1000 MG, BID
     Route: 042
     Dates: start: 20020123
  32. ALBUTEROL SULFATE [Concomitant]
     Active Substance: ALBUTEROL SULFATE
     Indication: Dyspnoea
     Dosage: 2.5 MG/0.5 ML
  33. ALBUTEROL SULFATE [Concomitant]
     Active Substance: ALBUTEROL SULFATE
     Indication: Wheezing

REACTIONS (7)
  - Cardiac arrest [Recovered/Resolved]
  - Shock [Recovered/Resolved]
  - Respiratory failure [Not Recovered/Not Resolved]
  - Pneumothorax [Recovered/Resolved]
  - Platelet count increased [Recovered/Resolved]
  - Alanine aminotransferase increased [Recovered/Resolved]
  - Oral candidiasis [Not Recovered/Not Resolved]

NARRATIVE: CASE EVENT DATE: 20211212
